FAERS Safety Report 24673686 (Version 1)
Quarter: 2024Q4

REPORT INFORMATION
  Report Type: Spontaneous
  Country: FR (occurrence: FR)
  Receive Date: 20241128
  Receipt Date: 20241128
  Transmission Date: 20250115
  Serious: Yes (Hospitalization)
  Sender: ROCHE
  Company Number: FR-002147023-PHHY2013FR061690

PATIENT
  Age: 91 Year
  Sex: Female

DRUGS (1)
  1. LUCENTIS [Suspect]
     Active Substance: RANIBIZUMAB
     Indication: Age-related macular degeneration
     Dosage: UNK
     Route: 050
     Dates: start: 20130523

REACTIONS (4)
  - Eye inflammation [Unknown]
  - Endophthalmitis [Recovering/Resolving]
  - Hypopyon [Unknown]
  - Visual acuity reduced [Unknown]

NARRATIVE: CASE EVENT DATE: 20130527
